FAERS Safety Report 8708255 (Version 2)
Quarter: 2012Q4

REPORT INFORMATION
  Report Type: 
  Country: US (occurrence: US)
  Receive Date: 20120806
  Receipt Date: 20120910
  Transmission Date: 20130627
  Serious: Yes (Hospitalization)
  Sender: FDA-Public Use
  Company Number: US-BAYER-2012-075919

PATIENT
  Age: 38 Year
  Sex: Female
  Weight: 68.03 kg

DRUGS (12)
  1. YAZ [Suspect]
     Indication: ACNE
     Dosage: UNK
     Dates: start: 20040325, end: 20100719
  2. YAZ [Suspect]
     Indication: PREMENSTRUAL SYNDROME
  3. OXY-ELITE PRO [Concomitant]
     Indication: MEDICAL DIET
     Dosage: UNK, Daily
     Dates: start: 201007
  4. OXY-ELITE PRO [Concomitant]
     Indication: DECREASED APPETITE
  5. GLUCOMANNAN [Concomitant]
     Indication: MEDICAL DIET
     Dosage: UNK, Daily
  6. MULTIVITAMIN [Concomitant]
     Dosage: UNK, Daily
  7. BUSPAR [Concomitant]
     Indication: ANXIETY
     Dosage: 10 mg, UNK
     Dates: start: 1999
  8. WELLBUTRIN [Concomitant]
     Indication: ANXIETY
     Dosage: 150 mg, UNK
     Dates: start: 200912
  9. HYDROCODONE [Concomitant]
     Indication: PAIN
     Dosage: 5 mg, UNK
     Dates: start: 2008
  10. AMBIEN [Concomitant]
     Indication: SLEEP DISORDER
     Dosage: 5 mg, UNK
     Dates: start: 2002
  11. TIZANIDINE [Concomitant]
     Indication: PAIN
     Dosage: 4 mg, BID
     Dates: start: 20100717
  12. MELOXICAM [Concomitant]
     Indication: PAIN
     Dosage: 7.5 mg, UNK
     Dates: start: 20100717

REACTIONS (5)
  - Pulmonary embolism [None]
  - Deep vein thrombosis [None]
  - Pain [None]
  - Injury [None]
  - Pain [None]
